FAERS Safety Report 17202210 (Version 2)
Quarter: 2020Q1

REPORT INFORMATION
  Report Type: Report from Study
  Country: US (occurrence: US)
  Receive Date: 20191226
  Receipt Date: 20200121
  Transmission Date: 20200409
  Serious: Yes (Death, Other)
  Sender: FDA-Public Use
  Company Number: US-TAIHO ONCOLOGY  INC-EU-2019-04305

PATIENT
  Age: 55 Year
  Sex: Female
  Weight: 59.02 kg

DRUGS (1)
  1. LONSURF [Suspect]
     Active Substance: TIPIRACIL HYDROCHLORIDE\TRIFLURIDINE
     Indication: COLON CANCER
     Dosage: 60MG QAM AND 40MG QPM?CURRENT CYCLE UNKNOWN.
     Route: 048
     Dates: start: 20180709

REACTIONS (2)
  - Death [Fatal]
  - Stent placement [Unknown]

NARRATIVE: CASE EVENT DATE: 20191219
